FAERS Safety Report 13281939 (Version 1)
Quarter: 2017Q1

REPORT INFORMATION
  Report Type: Spontaneous
  Country: US (occurrence: US)
  Receive Date: 20170301
  Receipt Date: 20170301
  Transmission Date: 20170428
  Serious: No
  Sender: FDA-Public Use
  Company Number: US-FERRINGPH-2016FE03456

PATIENT
  Age: 26 Year
  Sex: Female
  Weight: 60 kg

DRUGS (5)
  1. ABILIFY [Concomitant]
     Active Substance: ARIPIPRAZOLE
     Indication: PRODUCT USED FOR UNKNOWN INDICATION
     Dosage: UNK
  2. DESMOPRESSIN [Suspect]
     Active Substance: DESMOPRESSIN
     Indication: DIABETES INSIPIDUS
     Dosage: 1 SPRAY IN EACH NOSTRIL EVERY EIGHT HOURS
     Route: 045
  3. DESMOPRESSIN [Suspect]
     Active Substance: DESMOPRESSIN
     Dosage: 1 SPRAY IN EACH NOSTRIL EVERY EIGHT HOURS
     Route: 045
  4. DESMOPRESSIN [Suspect]
     Active Substance: DESMOPRESSIN
     Dosage: 1 SPRAY IN EACH NOSTRIL EVERY EIGHT HOURS
     Route: 045
  5. VIORELE [Concomitant]
     Active Substance: DESOGESTREL\ETHINYL ESTRADIOL
     Indication: CONTRACEPTION
     Dosage: UNK

REACTIONS (1)
  - Drug ineffective [Unknown]

NARRATIVE: CASE EVENT DATE: 201605
